FAERS Safety Report 21692230 (Version 5)
Quarter: 2024Q2

REPORT INFORMATION
  Report Type: Other
  Country: DE (occurrence: None)
  Receive Date: 20221207
  Receipt Date: 20240517
  Transmission Date: 20240716
  Serious: No
  Sender: FDA-Public Use
  Company Number: DE-ROCHE-3170043

PATIENT
  Age: 28 Year
  Sex: Female

DRUGS (5)
  1. OCREVUS [Suspect]
     Active Substance: OCRELIZUMAB
     Indication: Relapsing-remitting multiple sclerosis
     Dosage: THEN 600 MG EVERY 195 DAY, EVERY 190 DAYS?3RD MAINTENANCE DOSE WAS ON 22/FEB/2024
     Route: 042
     Dates: start: 20220803
  2. DEKRISTOL 20 000 [Concomitant]
  3. PROPIONIC ACID [Concomitant]
     Active Substance: PROPIONIC ACID
  4. LEVOTHYROXINE SODIUM [Concomitant]
     Active Substance: LEVOTHYROXINE SODIUM
  5. VITAMIN D3 [Concomitant]
     Active Substance: CHOLECALCIFEROL

REACTIONS (5)
  - Fatigue [Recovered/Resolved]
  - COVID-19 [Recovered/Resolved]
  - Alopecia [Recovered/Resolved]
  - Seasonal allergy [Recovered/Resolved]
  - Gastroenteritis [Recovered/Resolved]

NARRATIVE: CASE EVENT DATE: 20220803
